FAERS Safety Report 7250823-9 (Version None)
Quarter: 2011Q1

REPORT INFORMATION
  Report Type: 
  Country: None (occurrence: None)
  Receive Date: 20110119
  Receipt Date: 20110107
  Transmission Date: 20110831
  Serious: Yes (Other)
  Sender: FDA-Public Use
  Company Number: 025033

PATIENT
  Sex: Male

DRUGS (8)
  1. LAMOTRIGINE [Suspect]
     Indication: EPILEPSY
     Dosage: 100 MG BID ORAL
     Route: 048
  2. TEGRETOL [Suspect]
     Indication: EPILEPSY
     Dosage: 200 MG TID ORAL
     Route: 048
  3. THERALENE (THERALENE 4%) (NOT SPECIFIED) [Suspect]
     Indication: INSOMNIA
     Dosage: 15 ORAL DROPS/DAY ORAL
     Route: 048
  4. KEPPRA [Suspect]
     Indication: EPILEPSY
     Dosage: 500 MG 6X/DAY ORAL
     Route: 048
  5. URBANYL (URBANYL) (NOT SPECIFIED) [Suspect]
     Indication: EPILEPSY
     Dosage: 10 MG 6X/DAY ORAL
     Route: 048
  6. ATARAX [Suspect]
     Indication: ANXIETY
     Dosage: 25 MG BID ORAL
     Route: 048
  7. ABILIFY [Suspect]
     Dosage: 10 MG BID ORAL
     Route: 048
     Dates: start: 20100407
  8. TRANXENE [Suspect]
     Indication: ANXIETY
     Dosage: 20 MG TID ORAL
     Route: 048

REACTIONS (3)
  - BRADYCARDIA [None]
  - ABNORMAL BEHAVIOUR [None]
  - ELECTROCARDIOGRAM QT PROLONGED [None]
